FAERS Safety Report 14122270 (Version 3)
Quarter: 2019Q1

REPORT INFORMATION
  Report Type: Spontaneous
  Country: US (occurrence: US)
  Receive Date: 20171024
  Receipt Date: 20190304
  Transmission Date: 20190417
  Serious: No
  Sender: FDA-Public Use
  Company Number: US-IMPAX LABORATORIES, INC-2017-IPXL-02455

PATIENT
  Sex: Female
  Weight: 120 kg

DRUGS (7)
  1. RYTARY [Suspect]
     Active Substance: CARBIDOPA\LEVODOPA
     Indication: PARKINSON^S DISEASE
     Dosage: 36.25/145MG, THREE CAPSULES, THREE TIMES A DAY
     Route: 048
     Dates: start: 2016
  2. RYTARY [Suspect]
     Active Substance: CARBIDOPA\LEVODOPA
     Dosage: 48.75/195 MG 1 CAP + 36.25/145 MG, 2 CAPS, THREE TIMES DAILY
     Route: 048
     Dates: start: 201709, end: 201709
  3. RYTARY [Suspect]
     Active Substance: CARBIDOPA\LEVODOPA
     Dosage: 36.25/145 MG, FOUR CAPSULES, THREE TIMES A DAY
     Route: 048
     Dates: start: 20171005
  4. NEUPRO [Concomitant]
     Active Substance: ROTIGOTINE
     Indication: RESTLESS LEGS SYNDROME
     Dosage: UNK
     Route: 065
  5. ASPIRIN. [Concomitant]
     Active Substance: ASPIRIN
     Indication: PRODUCT USED FOR UNKNOWN INDICATION
     Dosage: 81 MG, UNK
     Route: 065
  6. LEXAPRO [Concomitant]
     Active Substance: ESCITALOPRAM OXALATE
     Indication: DEPRESSION
     Dosage: UNK
     Route: 065
  7. DICLOFENAC [Concomitant]
     Active Substance: DICLOFENAC
     Indication: ARTHRITIS
     Dosage: 100 MG, UNK
     Route: 065

REACTIONS (8)
  - Balance disorder [Not Recovered/Not Resolved]
  - Dizziness [Unknown]
  - Freezing phenomenon [Not Recovered/Not Resolved]
  - Bradykinesia [Not Recovered/Not Resolved]
  - Weight increased [Unknown]
  - Asthenia [Not Recovered/Not Resolved]
  - Cough [Not Recovered/Not Resolved]
  - Drug effect delayed [Not Recovered/Not Resolved]

NARRATIVE: CASE EVENT DATE: 2017
